FAERS Safety Report 21249385 (Version 2)
Quarter: 2022Q4

REPORT INFORMATION
  Report Type: Spontaneous
  Country: US (occurrence: US)
  Receive Date: 20220824
  Receipt Date: 20221107
  Transmission Date: 20230112
  Serious: No
  Sender: FDA-Public Use
  Company Number: US-BAYER-2022A118238

PATIENT
  Age: 23 Year
  Sex: Female

DRUGS (1)
  1. KYLEENA [Suspect]
     Active Substance: LEVONORGESTREL
     Indication: Contraception
     Dosage: 17.5?G/DAY
     Route: 015
     Dates: start: 201705

REACTIONS (1)
  - Device use issue [None]
